FAERS Safety Report 8304821-4 (Version None)
Quarter: 2012Q2

REPORT INFORMATION
  Report Type: 
  Country: None (occurrence: None)
  Receive Date: 20120423
  Receipt Date: 20120418
  Transmission Date: 20120825
  Serious: No
  Sender: FDA-Public Use
  Company Number: US-PFIZER INC-2012096878

PATIENT
  Sex: Female

DRUGS (2)
  1. PLAVIX [Suspect]
     Dosage: UNK
  2. CHANTIX [Suspect]
     Dosage: UNK
     Dates: end: 20120401

REACTIONS (2)
  - CHROMATURIA [None]
  - URINE ODOUR ABNORMAL [None]
